FAERS Safety Report 12706651 (Version 3)
Quarter: 2016Q3

REPORT INFORMATION
  Report Type: Spontaneous
  Country: FI (occurrence: FI)
  Receive Date: 20160901
  Receipt Date: 20160923
  Transmission Date: 20161109
  Serious: Yes (Other)
  Sender: FDA-Public Use
  Company Number: FI-JNJFOC-20160822314

PATIENT
  Age: 10 Year
  Sex: Male

DRUGS (1)
  1. INFLIXIMAB [Suspect]
     Active Substance: INFLIXIMAB
     Indication: CROHN^S DISEASE
     Route: 042

REACTIONS (5)
  - Crohn^s disease [Unknown]
  - Jejunectomy [Unknown]
  - Therapeutic response unexpected [Unknown]
  - Therapeutic response decreased [Unknown]
  - Drug specific antibody present [Unknown]
